FAERS Safety Report 24967127 (Version 1)
Quarter: 2025Q1

REPORT INFORMATION
  Report Type: Spontaneous
  Country: US (occurrence: US)
  Receive Date: 20250213
  Receipt Date: 20250213
  Transmission Date: 20250409
  Serious: No
  Sender: TEVA
  Company Number: US-TEVA-VS-3291686

PATIENT
  Age: 66 Year
  Sex: Male

DRUGS (1)
  1. AUSTEDO [Suspect]
     Active Substance: DEUTETRABENAZINE
     Indication: Tardive dyskinesia
     Dosage: DAILY DOSE: 24 MG
     Route: 065
     Dates: end: 20250120

REACTIONS (4)
  - Tremor [Unknown]
  - Product use issue [Unknown]
  - Off label use [Unknown]
  - Screaming [Unknown]
